FAERS Safety Report 11440425 (Version 1)
Quarter: 2015Q3

REPORT INFORMATION
  Report Type: Spontaneous
  Country: US (occurrence: None)
  Receive Date: 20150831
  Receipt Date: 20150831
  Transmission Date: 20151125
  Serious: Yes (Disabling)
  Sender: FDA-Public Use
  Company Number: None

PATIENT
  Age: 47 Year
  Sex: Female
  Weight: 90.72 kg

DRUGS (8)
  1. TYLENOL [Concomitant]
     Active Substance: ACETAMINOPHEN
  2. LEXAPRO [Concomitant]
     Active Substance: ESCITALOPRAM OXALATE
  3. ADVIL [Concomitant]
     Active Substance: IBUPROFEN
  4. LEVAQUIN [Suspect]
     Active Substance: LEVOFLOXACIN
     Indication: SINUSITIS
     Dosage: 1
     Route: 048
     Dates: start: 20150817, end: 20150827
  5. SYNTHROID [Concomitant]
     Active Substance: LEVOTHYROXINE SODIUM
  6. OMEPRAZOLE. [Concomitant]
     Active Substance: OMEPRAZOLE
  7. TRANXENE T-TAB [Concomitant]
     Active Substance: CLORAZEPATE DIPOTASSIUM
  8. FENRING [Concomitant]

REACTIONS (3)
  - Joint swelling [None]
  - Weight bearing difficulty [None]
  - Arthralgia [None]

NARRATIVE: CASE EVENT DATE: 20150827
